FAERS Safety Report 11361942 (Version 8)
Quarter: 2016Q1

REPORT INFORMATION
  Report Type: Report from Study
  Country: CA (occurrence: CA)
  Receive Date: 20150810
  Receipt Date: 20160202
  Transmission Date: 20160525
  Serious: Yes (Hospitalization, Other)
  Sender: FDA-Public Use
  Company Number: PHHY2014CA007651

PATIENT
  Age: 74 Year
  Sex: Female

DRUGS (5)
  1. SANDOSTATIN LAR DEPOT [Suspect]
     Active Substance: OCTREOTIDE ACETATE
     Indication: CARCINOID TUMOUR
     Dosage: 30 MG, QMO (EVERY 4 WEEK)
     Route: 030
     Dates: start: 20050901
  2. GABAPENTIN. [Concomitant]
     Active Substance: GABAPENTIN
     Indication: PRODUCT USED FOR UNKNOWN INDICATION
     Dosage: 1 DF, BID
     Route: 048
     Dates: end: 20140203
  3. PRAMIPEXOLE DIHYDROCHLORIDE. [Concomitant]
     Active Substance: PRAMIPEXOLE DIHYDROCHLORIDE
     Indication: PRODUCT USED FOR UNKNOWN INDICATION
     Dosage: 0.25 MG, UNK
     Route: 065
  4. OXYCOCET [Suspect]
     Active Substance: ACETAMINOPHEN\OXYCODONE HYDROCHLORIDE
     Indication: PRODUCT USED FOR UNKNOWN INDICATION
     Route: 065
     Dates: start: 20140115
  5. SANDOSTATIN LAR DEPOT [Suspect]
     Active Substance: OCTREOTIDE ACETATE
     Dosage: 60 MG, QMO  (EVERY 4 WEEK)
     Route: 030
     Dates: end: 20151218

REACTIONS (38)
  - Extrasystoles [Unknown]
  - Skin abrasion [Unknown]
  - Oedema peripheral [Unknown]
  - Musculoskeletal pain [Unknown]
  - Back pain [Unknown]
  - Gastrointestinal disorder [Not Recovered/Not Resolved]
  - Blister [Unknown]
  - Tooth abscess [Unknown]
  - Vomiting [Unknown]
  - Blood pressure systolic increased [Unknown]
  - Limb injury [Unknown]
  - Metastases to bone [Unknown]
  - Fall [Unknown]
  - Balance disorder [Unknown]
  - Joint injury [Unknown]
  - Lethargy [Unknown]
  - Jaundice [Unknown]
  - Diarrhoea [Not Recovered/Not Resolved]
  - Cellulitis [Unknown]
  - Neck pain [Unknown]
  - Peripheral swelling [Not Recovered/Not Resolved]
  - Inflammation [Unknown]
  - Contusion [Unknown]
  - Lymphorrhoea [Unknown]
  - Petechiae [Unknown]
  - General physical health deterioration [Unknown]
  - Nausea [Unknown]
  - Decreased appetite [Unknown]
  - Pain [Unknown]
  - Blood pressure increased [Unknown]
  - Heart rate irregular [Unknown]
  - Fluid retention [Unknown]
  - Cataract operation complication [Unknown]
  - Malaise [Unknown]
  - Flushing [Unknown]
  - Lymphoedema [Unknown]
  - Joint swelling [Unknown]
  - Communication disorder [Unknown]

NARRATIVE: CASE EVENT DATE: 20131223
